FAERS Safety Report 5801058-5 (Version None)
Quarter: 2008Q3

REPORT INFORMATION
  Report Type: 
  Country: None (occurrence: None)
  Receive Date: 20080704
  Receipt Date: 20080630
  Transmission Date: 20090109
  Serious: Yes (Death, Other)
  Sender: FDA-Public Use
  Company Number: US-ELI_LILLY_AND_COMPANY-US200806002222

PATIENT
  Age: 35 Year
  Sex: Male
  Weight: 111.57 kg

DRUGS (6)
  1. BYETTA [Suspect]
     Indication: TYPE 2 DIABETES MELLITUS
     Dosage: 5 UG, 2/D
     Dates: start: 20070921
  2. ZETIA [Concomitant]
     Dosage: 10 MG, UNK
  3. CADUET [Concomitant]
  4. AVANDIA [Concomitant]
     Dosage: 4 MG, UNK
  5. TRIAMTERENE AND HYDROCHLOROTHIAZIDE [Concomitant]
  6. LISINOPRIL [Concomitant]
     Dosage: 40 MG, UNK

REACTIONS (5)
  - DYSPNOEA [None]
  - ELECTROMECHANICAL DISSOCIATION [None]
  - INFLUENZA LIKE ILLNESS [None]
  - LOSS OF CONSCIOUSNESS [None]
  - RESPIRATORY ARREST [None]
